FAERS Safety Report 8953360 (Version 2)
Quarter: 2012Q4

REPORT INFORMATION
  Report Type: 
  Country: US (occurrence: US)
  Receive Date: 20121206
  Receipt Date: 20121217
  Transmission Date: 20130627
  Serious: No
  Sender: FDA-Public Use
  Company Number: US-PFIZER INC-2012301888

PATIENT
  Sex: Female

DRUGS (3)
  1. TOVIAZ [Suspect]
     Indication: OVERACTIVE BLADDER
     Dosage: 4 mg, UNK
  2. TOVIAZ [Suspect]
     Dosage: 8 mg, UNK
  3. TOVIAZ [Suspect]
     Dosage: 4 mg, 1x/day

REACTIONS (2)
  - Palpitations [Recovered/Resolved]
  - Feeling abnormal [Recovered/Resolved]
